FAERS Safety Report 5900630-1 (Version None)
Quarter: 2008Q3

REPORT INFORMATION
  Report Type: 
  Country: None (occurrence: None)
  Receive Date: 20080926
  Receipt Date: 20080916
  Transmission Date: 20090109
  Serious: Yes (Hospitalization, Other)
  Sender: FDA-Public Use
  Company Number: US-AMGEN-QUU309793

PATIENT
  Sex: Female

DRUGS (8)
  1. ENBREL [Suspect]
     Indication: DRUG USE FOR UNKNOWN INDICATION
     Route: 064
     Dates: start: 20041101
  2. SYNTHROID [Concomitant]
     Route: 064
  3. PREVACID [Concomitant]
     Route: 064
  4. PREDNISONE [Concomitant]
     Route: 064
  5. METFORMIN HCL [Concomitant]
     Route: 064
  6. HEPARIN [Concomitant]
     Route: 064
  7. PROGESTERONE [Concomitant]
     Route: 064
  8. ESTROGENIC SUBSTANCE [Concomitant]
     Route: 064

REACTIONS (3)
  - OXYGEN SUPPLEMENTATION [None]
  - PREMATURE BABY [None]
  - SMALL FOR DATES BABY [None]
